FAERS Safety Report 16111815 (Version 2)
Quarter: 2019Q2

REPORT INFORMATION
  Report Type: Spontaneous
  Country: US (occurrence: US)
  Receive Date: 20190325
  Receipt Date: 20190422
  Transmission Date: 20190711
  Serious: No
  Sender: FDA-Public Use
  Company Number: US-SA-2019SA076439

PATIENT
  Age: 77 Year
  Sex: Male
  Weight: 66.6 kg

DRUGS (2)
  1. PRALUENT [Suspect]
     Active Substance: ALIROCUMAB
     Indication: BLOOD CHOLESTEROL INCREASED
     Dosage: 150 MG, QOW
     Route: 065
     Dates: start: 2017
  2. PRALUENT [Suspect]
     Active Substance: ALIROCUMAB
     Indication: CARDIOVASCULAR DISORDER
     Dosage: 150 MG, QOW
     Route: 058
     Dates: start: 20190317

REACTIONS (4)
  - Injection site pain [Recovered/Resolved]
  - Peau d^orange [Recovered/Resolved]
  - Injection site swelling [Recovered/Resolved]
  - Incorrect route of product administration [Recovered/Resolved]

NARRATIVE: CASE EVENT DATE: 20190317
